FAERS Safety Report 6436073-4 (Version None)
Quarter: 2009Q4

REPORT INFORMATION
  Report Type: 
  Country: None (occurrence: None)
  Receive Date: 20091111
  Receipt Date: 20091105
  Transmission Date: 20100525
  Serious: Yes (Hospitalization, Other)
  Sender: FDA-Public Use
  Company Number: US-ELI_LILLY_AND_COMPANY-US200911001606

PATIENT
  Sex: Female

DRUGS (5)
  1. HUMALOG [Suspect]
     Indication: DIABETES MELLITUS
     Dosage: 50 U, AS NEEDED
  2. HUMALOG [Suspect]
     Dosage: UNK, 3/D
  3. LANTUS [Concomitant]
     Dosage: UNK, 2/D
  4. COUMADIN [Concomitant]
     Indication: THROMBOSIS
  5. NOVOLOG [Concomitant]

REACTIONS (13)
  - ANTIPHOSPHOLIPID ANTIBODIES POSITIVE [None]
  - ANXIETY [None]
  - ATRIAL FIBRILLATION [None]
  - DIVERTICULITIS [None]
  - GAIT DISTURBANCE [None]
  - HYPERTENSION [None]
  - HYPOTENSION [None]
  - MADAROSIS [None]
  - NEUROPATHY PERIPHERAL [None]
  - PALPITATIONS [None]
  - RENAL IMPAIRMENT [None]
  - RENAL INFARCT [None]
  - THROMBOSIS [None]
